FAERS Safety Report 9145926 (Version 1)
Quarter: 2013Q1

REPORT INFORMATION
  Report Type: Spontaneous
  Country: US (occurrence: None)
  Receive Date: 20130215
  Receipt Date: 20130215
  Transmission Date: 20140127
  Serious: Yes (Death)
  Sender: FDA-Public Use
  Company Number: 2013020133

PATIENT
  Age: 29 Year
  Sex: Male
  Weight: 78.6 kg

DRUGS (3)
  1. CAFFEINE [Suspect]
     Route: 048
  2. TETRAHYDROCANNABINOL [Suspect]
     Route: 048
  3. LIDOCAINE (LIDOCAINE) [Suspect]
     Route: 048

REACTIONS (14)
  - Tremor [None]
  - Syncope [None]
  - Convulsion [None]
  - Pulse absent [None]
  - Coma [None]
  - Hypoxic-ischaemic encephalopathy [None]
  - Brain oedema [None]
  - Pulmonary oedema [None]
  - Myocardial infarction [None]
  - Rhabdomyolysis [None]
  - Accidental death [None]
  - Blood glucose increased [None]
  - International normalised ratio increased [None]
  - Cardio-respiratory arrest [None]
